FAERS Safety Report 23814773 (Version 1)
Quarter: 2024Q2

REPORT INFORMATION
  Report Type: Spontaneous
  Country: FR (occurrence: FR)
  Receive Date: 20240503
  Receipt Date: 20240503
  Transmission Date: 20240715
  Serious: Yes (Other)
  Sender: FDA-Public Use
  Company Number: FR-AFSSAPS-SE2024000335

PATIENT
  Age: 46 Year
  Sex: Female

DRUGS (2)
  1. ZOPICLONE [Suspect]
     Active Substance: ZOPICLONE
     Indication: Product used for unknown indication
     Dosage: 22 DOSAGE FORM TOTAL
     Route: 048
     Dates: start: 20240411
  2. ALPRAZOLAM [Suspect]
     Active Substance: ALPRAZOLAM
     Indication: Product used for unknown indication
     Dosage: 7 DOSAGE FORM TOTAL
     Route: 048
     Dates: start: 20240411

REACTIONS (2)
  - Sedation [Recovered/Resolved]
  - Intentional overdose [Recovered/Resolved]

NARRATIVE: CASE EVENT DATE: 20240411
